FAERS Safety Report 8250898-4 (Version None)
Quarter: 2012Q1

REPORT INFORMATION
  Report Type: 
  Country: None (occurrence: None)
  Receive Date: 20120328
  Receipt Date: 20120317
  Transmission Date: 20120608
  Serious: Yes (Other)
  Sender: FDA-Public Use
  Company Number: 2012AP000752

PATIENT
  Age: 40 Year
  Sex: Female

DRUGS (3)
  1. BUPROPION HCL [Concomitant]
  2. BUPROPION HYDROCHLORIDE [Suspect]
     Indication: PRODUCT USED FOR UNKNOWN INDICATION
     Dosage: 100 MG, TID
  3. IBUPROFEN [Concomitant]

REACTIONS (2)
  - CHOROIDAL EFFUSION [None]
  - ANGLE CLOSURE GLAUCOMA [None]
